FAERS Safety Report 5063252-3 (Version None)
Quarter: 2006Q3

REPORT INFORMATION
  Report Type: 
  Country: None (occurrence: None)
  Receive Date: 20060724
  Receipt Date: 20060711
  Transmission Date: 20061208
  Serious: Yes (Hospitalization)
  Sender: FDA-Public Use
  Company Number: 2006084928

PATIENT
  Age: 66 Year
  Sex: Male
  Weight: 65.7 kg

DRUGS (1)
  1. SUTENT [Suspect]
     Indication: PROSTATE CANCER

REACTIONS (2)
  - INFECTION [None]
  - PAROTITIS [None]
